FAERS Safety Report 5959611-4 (Version None)
Quarter: 2008Q4

REPORT INFORMATION
  Report Type: 
  Country: None (occurrence: None)
  Receive Date: 20081120
  Receipt Date: 20081111
  Transmission Date: 20090506
  Serious: Yes (Hospitalization)
  Sender: FDA-Public Use
  Company Number: US-AMGEN-US319026

PATIENT
  Age: 72 Year
  Sex: Male

DRUGS (2)
  1. ENBREL [Suspect]
     Indication: PSORIATIC ARTHROPATHY
     Route: 058
  2. PREDNISONE TAB [Concomitant]
     Dosage: TAPERED TO 1 MG, EVERY OTHER DAY

REACTIONS (1)
  - LUPUS-LIKE SYNDROME [None]
